FAERS Safety Report 6054442-1 (Version None)
Quarter: 2009Q1

REPORT INFORMATION
  Report Type: 
  Country: None (occurrence: None)
  Receive Date: 20090127
  Receipt Date: 20090116
  Transmission Date: 20090719
  Serious: Yes (Other)
  Sender: FDA-Public Use
  Company Number: DE-B.I. PHARMACEUTICALS,INC./RIDGEFIELD-2008-DE-07827GD

PATIENT
  Age: 47 Year
  Sex: Female

DRUGS (10)
  1. TIOTROPIUM [Suspect]
     Indication: CHRONIC OBSTRUCTIVE PULMONARY DISEASE
     Route: 055
  2. TIOTROPIUM [Suspect]
     Indication: EMPHYSEMA
  3. IPRATROPIUMBROMID [Suspect]
     Indication: CHRONIC OBSTRUCTIVE PULMONARY DISEASE
     Route: 055
  4. IPRATROPIUMBROMID [Suspect]
     Indication: EMPHYSEMA
  5. FORMOTEROL FUMARATE [Suspect]
     Indication: CHRONIC OBSTRUCTIVE PULMONARY DISEASE
     Route: 055
  6. FORMOTEROL FUMARATE [Suspect]
     Indication: EMPHYSEMA
  7. ACETYLCYSTEINE [Suspect]
     Indication: CHRONIC OBSTRUCTIVE PULMONARY DISEASE
  8. ACETYLCYSTEINE [Suspect]
     Indication: EMPHYSEMA
  9. PREDNISOLONE [Suspect]
     Indication: CHRONIC OBSTRUCTIVE PULMONARY DISEASE
     Dosage: 40MG
  10. PREDNISOLONE [Suspect]
     Indication: EMPHYSEMA

REACTIONS (10)
  - ANOREXIA [None]
  - ANXIETY [None]
  - CHRONIC OBSTRUCTIVE PULMONARY DISEASE [None]
  - DISTURBANCE IN ATTENTION [None]
  - DRUG INEFFECTIVE [None]
  - EMPHYSEMA [None]
  - MALNUTRITION [None]
  - REFUSAL OF TREATMENT BY PATIENT [None]
  - RESPIRATORY FAILURE [None]
  - WEIGHT DECREASED [None]
